FAERS Safety Report 14146422 (Version 1)
Quarter: 2017Q4

REPORT INFORMATION
  Report Type: Spontaneous
  Country: US (occurrence: None)
  Receive Date: 20171031
  Receipt Date: 20171031
  Transmission Date: 20180321
  Serious: Yes (Life-Threatening, Disabling)
  Sender: FDA-Public Use
  Company Number: None

PATIENT
  Age: 46 Year
  Sex: Female
  Weight: 70.31 kg

DRUGS (7)
  1. SLEEPING MED OVER COUNTER [Concomitant]
  2. CMPD ESTRA 0.05/TEST 1 TROCHE COMPOUND MEDICINE PREP (ESTROGENS\TESTOSTERONE) [Suspect]
     Active Substance: ESTROGENS\TESTOSTERONE
     Indication: HORMONE LEVEL ABNORMAL
     Route: 048
     Dates: end: 20170723
  3. CMPD ESTRA 0.05/TEST 1 TROCHE COMPOUND MEDICINE PREP (ESTROGENS\TESTOSTERONE) [Suspect]
     Active Substance: ESTROGENS\TESTOSTERONE
     Indication: SUICIDAL IDEATION
     Route: 048
     Dates: end: 20170723
  4. STOOL SOFTENER (DOCUSATE SODIUM) [Concomitant]
     Active Substance: DOCUSATE SODIUM
  5. PAIN MEDS [Concomitant]
     Active Substance: UNSPECIFIED INGREDIENT
  6. THYROID MEDS [Concomitant]
  7. CMPD ESTRA 0.05/TEST 1 TROCHE COMPOUND MEDICINE PREP (ESTROGENS\TESTOSTERONE) [Suspect]
     Active Substance: ESTROGENS\TESTOSTERONE
     Indication: HYSTERECTOMY
     Route: 048
     Dates: end: 20170723

REACTIONS (2)
  - Thinking abnormal [None]
  - Laboratory test abnormal [None]

NARRATIVE: CASE EVENT DATE: 20170814
